FAERS Safety Report 7651164-8 (Version None)
Quarter: 2011Q3

REPORT INFORMATION
  Report Type: 
  Country: None (occurrence: None)
  Receive Date: 20110802
  Receipt Date: 20110721
  Transmission Date: 20111222
  Serious: Yes (Hospitalization, Other)
  Sender: FDA-Public Use
  Company Number: CA-JNJFOC-20100801172

PATIENT
  Sex: Male
  Weight: 103 kg

DRUGS (13)
  1. REMICADE [Suspect]
     Route: 042
  2. REMICADE [Suspect]
     Route: 042
  3. REMICADE [Suspect]
     Route: 042
  4. ASPIRIN [Concomitant]
     Indication: CARDIAC DISORDER
     Route: 048
  5. REMICADE [Suspect]
     Route: 042
  6. REMICADE [Suspect]
     Route: 042
     Dates: start: 20110701
  7. FOLIC ACID [Concomitant]
     Route: 048
  8. DEMEROL [Concomitant]
  9. REMICADE [Suspect]
     Indication: POLYARTHRITIS
     Route: 042
  10. REMICADE [Suspect]
     Route: 042
  11. FOSAMAX [Concomitant]
  12. REMICADE [Suspect]
     Route: 042
     Dates: start: 20070301
  13. REMICADE [Suspect]
     Route: 042
     Dates: start: 20100803

REACTIONS (5)
  - NEPHROLITHIASIS [None]
  - RHEUMATOID ARTHRITIS [None]
  - HYPERTENSION [None]
  - BUNDLE BRANCH BLOCK LEFT [None]
  - PALLOR [None]
